FAERS Safety Report 4267163-2 (Version None)
Quarter: 2004Q1

REPORT INFORMATION
  Report Type: 
  Country: None (occurrence: None)
  Receive Date: 20040107
  Receipt Date: 20031229
  Transmission Date: 20041129
  Serious: Yes (Hospitalization)
  Sender: FDA-Public Use
  Company Number: US-JNJFOC-20031205437

PATIENT
  Age: 45 Year
  Sex: Female
  Weight: 79.3795 kg

DRUGS (12)
  1. INFLIXIMAB (INFLIXIMAB, RECOMBINANT) LYOPHILIZED POWDER [Suspect]
     Indication: RHEUMATOID ARTHRITIS
     Dosage: INTRAVENOUS
     Route: 042
     Dates: start: 20000801, end: 20021226
  2. VITAMIN B6 [Concomitant]
  3. METHOTREXATE [Concomitant]
  4. PREDNISONE [Concomitant]
  5. VIOXX [Concomitant]
  6. MINOCYCLINE HCL [Concomitant]
  7. FOLIC ACID [Concomitant]
  8. MULTIVITAMIN (MULTIVITAMINS) [Concomitant]
  9. CALCIUM (CALCIUM) [Concomitant]
  10. GLUCOSAMINE (GLUCOSAMINE) [Concomitant]
  11. HUMIRA (ALL OTHER THERAPEUTIC PRODUCTS) [Concomitant]
  12. VITAMIN B6 [Concomitant]

REACTIONS (2)
  - ACUTE RESPIRATORY DISTRESS SYNDROME [None]
  - CHRONIC OBSTRUCTIVE AIRWAYS DISEASE EXACERBATED [None]
